FAERS Safety Report 5463877-7 (Version None)
Quarter: 2007Q3

REPORT INFORMATION
  Report Type: 
  Country: None (occurrence: None)
  Receive Date: 20070730
  Receipt Date: 20070319
  Transmission Date: 20080115
  Serious: Yes (Hospitalization, Other)
  Sender: FDA-Public Use
  Company Number: 2007BH002986

PATIENT
  Age: 60 Year
  Sex: Female
  Weight: 74 kg

DRUGS (2)
  1. GAMMAGARD S/D [Suspect]
     Indication: MULTIPLE MYELOMA
     Dosage: 38.5 GM;ONCE;IV
     Route: 042
     Dates: start: 20070314, end: 20070314
  2. GAMMAGARD S/D [Suspect]

REACTIONS (5)
  - FATIGUE [None]
  - HEADACHE [None]
  - NAUSEA [None]
  - PHOTOPHOBIA [None]
  - PYREXIA [None]
